FAERS Safety Report 7535245-5 (Version None)
Quarter: 2011Q2

REPORT INFORMATION
  Report Type: 
  Country: None (occurrence: None)
  Receive Date: 20110609
  Receipt Date: 20071214
  Transmission Date: 20111010
  Serious: Yes (Hospitalization)
  Sender: FDA-Public Use
  Company Number: PHEH2007US15559

PATIENT
  Sex: Female

DRUGS (5)
  1. TOPROL-XL [Suspect]
  2. LASIX [Suspect]
     Indication: HYPERTENSION
     Dosage: 40 MG, QD
     Dates: start: 20050101
  3. LASIX [Suspect]
  4. DIOVAN HCT [Suspect]
     Indication: HYPERTENSION
     Dosage: 320 MG VAL/12.5 MG HCT QD
     Route: 048
     Dates: start: 20061201, end: 20071213
  5. TOPROL-XL [Suspect]
     Dosage: 100 MG, QD
     Dates: start: 20050101

REACTIONS (3)
  - CHEST PAIN [None]
  - HYPERTENSION [None]
  - BLOOD PRESSURE FLUCTUATION [None]
